FAERS Safety Report 5922436-X (Version None)
Quarter: 2008Q3

REPORT INFORMATION
  Report Type: 
  Country: None (occurrence: None)
  Receive Date: 20080909
  Receipt Date: 20080620
  Transmission Date: 20090109
  Serious: Yes (Hospitalization)
  Sender: FDA-Public Use
  Company Number: 163-20785-08051476

PATIENT
  Age: 84 Year
  Sex: Female

DRUGS (14)
  1. THALOMID [Suspect]
     Indication: MULTIPLE MYELOMA
     Dosage: 100 MG, QD, ORAL
     Route: 048
     Dates: start: 20080229
  2. MAGNESIUM HYDROXIDE TAB [Concomitant]
  3. BISACODYL (BISACODYL) [Concomitant]
  4. VICODIN [Concomitant]
  5. MIRALAX [Concomitant]
  6. SENNA (SENNA) [Concomitant]
  7. EPOGEN [Concomitant]
  8. ATENOLOL [Concomitant]
  9. PAXIL [Concomitant]
  10. SYNTHROID [Concomitant]
  11. INSULIN (INSULIN) [Concomitant]
  12. DITROPAN [Concomitant]
  13. LASIX [Concomitant]
  14. CALCIUM (CALCIUM) [Concomitant]

REACTIONS (1)
  - HYPOKALAEMIA [None]
